FAERS Safety Report 25256612 (Version 1)
Quarter: 2025Q2

REPORT INFORMATION
  Report Type: Spontaneous
  Country: TR (occurrence: TR)
  Receive Date: 20250430
  Receipt Date: 20250430
  Transmission Date: 20250716
  Serious: Yes (Life-Threatening, Other)
  Sender: SANDOZ
  Company Number: TR-002147023-NVSC2025TR069827

PATIENT
  Age: 24 Year

DRUGS (1)
  1. RITALIN [Suspect]
     Active Substance: METHYLPHENIDATE HYDROCHLORIDE
     Indication: Product used for unknown indication
     Route: 065

REACTIONS (3)
  - Feeling abnormal [Unknown]
  - Drug abuse [Unknown]
  - Incorrect route of product administration [Unknown]
